FAERS Safety Report 6558795-7 (Version None)
Quarter: 2010Q1

REPORT INFORMATION
  Report Type: 
  Country: None (occurrence: None)
  Receive Date: 20100129
  Receipt Date: 20091229
  Transmission Date: 20100710
  Serious: No
  Sender: FDA-Public Use
  Company Number: US-BAYER-201010208BCC

PATIENT
  Age: 49 Year
  Sex: Female
  Weight: 70 kg

DRUGS (9)
  1. ALEVE (CAPLET) [Suspect]
     Indication: EPICONDYLITIS
     Dosage: TOTAL DAILY DOSE: 800 MG  UNIT DOSE: 220 MG
     Route: 048
     Dates: start: 20091203, end: 20091222
  2. VITAMIN D [Concomitant]
     Route: 065
  3. VITAMIN K TAB [Concomitant]
     Route: 065
  4. VITAMIN C [Concomitant]
     Route: 065
  5. VITAMIN B-12 [Concomitant]
     Route: 065
  6. KIRKLAND CALCIUM [Concomitant]
     Route: 065
  7. POTASSIUM [Concomitant]
     Route: 065
  8. MAGNESIUM [Concomitant]
     Route: 065
  9. CALCIUM PHOSPHATE [Concomitant]
     Route: 065

REACTIONS (2)
  - OEDEMA PERIPHERAL [None]
  - SKIN TIGHTNESS [None]
